FAERS Safety Report 20962984 (Version 1)
Quarter: 2022Q2

REPORT INFORMATION
  Report Type: Spontaneous
  Country: US (occurrence: None)
  Receive Date: 20220615
  Receipt Date: 20220615
  Transmission Date: 20220721
  Serious: No
  Sender: FDA-Public Use
  Company Number: None

PATIENT
  Age: 60 Year
  Sex: Male
  Weight: 90 kg

DRUGS (1)
  1. ARNUITY ELLIPTA [Suspect]
     Active Substance: FLUTICASONE FUROATE
     Indication: Asthma
     Dosage: OTHER QUANTITY : 30 PUFF(S);?
     Route: 048
     Dates: start: 20170901, end: 20220428

REACTIONS (6)
  - Device connection issue [None]
  - Tongue pruritus [None]
  - Tongue biting [None]
  - Drug ineffective [None]
  - Tongue disorder [None]
  - Lichen planus [None]

NARRATIVE: CASE EVENT DATE: 20220427
